FAERS Safety Report 7778429-3 (Version None)
Quarter: 2011Q3

REPORT INFORMATION
  Report Type: 
  Country: None (occurrence: None)
  Receive Date: 20110926
  Receipt Date: 20110920
  Transmission Date: 20111222
  Serious: Yes (Other)
  Sender: FDA-Public Use
  Company Number: US-GLAXOSMITHKLINE-A0945307A

PATIENT
  Age: 69 Year
  Sex: Male

DRUGS (2)
  1. CONCURRENT MEDICATIONS [Concomitant]
  2. ADVAIR DISKUS 100/50 [Suspect]
     Indication: CHRONIC OBSTRUCTIVE PULMONARY DISEASE
     Dosage: 2SPR TWICE PER DAY
     Route: 055
     Dates: start: 20110801, end: 20110918

REACTIONS (5)
  - CYANOSIS [None]
  - GLOSSITIS [None]
  - TONGUE DRY [None]
  - SALIVARY HYPERSECRETION [None]
  - STOMATITIS [None]
